FAERS Safety Report 6269539-0 (Version None)
Quarter: 2009Q3

REPORT INFORMATION
  Report Type: 
  Country: None (occurrence: None)
  Receive Date: 20090714
  Receipt Date: 20090703
  Transmission Date: 20100115
  Serious: Yes (Disabling)
  Sender: FDA-Public Use
  Company Number: 2009AP002698

PATIENT
  Age: 61 Year
  Sex: Male

DRUGS (9)
  1. OMEPRAZOLE [Suspect]
  2. ASPIRIN [Concomitant]
  3. BISOPROLOL FUMARATE [Concomitant]
  4. FUROSEMIDE [Concomitant]
  5. SALBUTAMOL (SALBUTAMOL) [Concomitant]
  6. SERTRALINE [Concomitant]
  7. BUDESONIDE [Concomitant]
  8. FORMOTEROL FUMARATE (FORMOTEROL FUMARATE) [Concomitant]
  9. TIOTROPIUM BROMIDE (TIOTROPIUM BROMIDE) [Concomitant]

REACTIONS (7)
  - BLOOD MAGNESIUM DECREASED [None]
  - ELECTROLYTE IMBALANCE [None]
  - HEPATIC FUNCTION ABNORMAL [None]
  - HYPERHIDROSIS [None]
  - HYPOCALCAEMIA [None]
  - HYPOKALAEMIA [None]
  - HYPOPHOSPHATAEMIA [None]
